FAERS Safety Report 10370672 (Version 1)
Quarter: 2014Q1

REPORT INFORMATION
  Report Type: Spontaneous
  Country: US (occurrence: None)
  Receive Date: 20140306
  Receipt Date: 20140306
  Transmission Date: 20141002
  Serious: Yes (Hospitalization)
  Sender: FDA-Public Use
  Company Number: 163-21880-13010062

PATIENT
  Age: 58 Year
  Sex: Male

DRUGS (9)
  1. REVLIMID (LENALIDOMIDE) (CAPSULES) [Suspect]
     Indication: PLASMA CELL MYELOMA
     Dosage: 10 MG, 21 IN 21 D, PO
     Route: 048
     Dates: start: 20121101
  2. AMBIEN (ZOLPIDEM TARTRATE) [Concomitant]
  3. ARANESP (DARBEPOETIN ALFA) [Concomitant]
  4. ASPIR-81 (ACETYLSALICYLIC ACID) [Concomitant]
  5. LYRICA (PREGABALIN) [Concomitant]
  6. MVI [Concomitant]
  7. OMEPRAZOLE [Concomitant]
  8. PERCOCET (OXYCOCET) [Concomitant]
  9. REGLAN (METOCLOPRAMIDE) [Concomitant]

REACTIONS (1)
  - Pneumonia [None]
